FAERS Safety Report 13073578 (Version 1)
Quarter: 2016Q4

REPORT INFORMATION
  Report Type: Spontaneous
  Country: GB (occurrence: GB)
  Receive Date: 20161229
  Receipt Date: 20161229
  Transmission Date: 20170207
  Serious: Yes (Other)
  Sender: FDA-Public Use
  Company Number: GB-FRESENIUS KABI-FK201610304

PATIENT
  Age: 28 Week
  Sex: Male

DRUGS (12)
  1. FUROSEMIDE. [Concomitant]
     Active Substance: FUROSEMIDE
  2. GENTAMICIN. [Concomitant]
     Active Substance: GENTAMICIN
  3. VANCOMYCIN [Concomitant]
     Active Substance: VANCOMYCIN
  4. INSULIN HUMAN [Concomitant]
     Active Substance: INSULIN HUMAN
  5. CEFTAZIDIME. [Concomitant]
     Active Substance: CEFTAZIDIME
  6. NYSTATIN. [Concomitant]
     Active Substance: NYSTATIN
  7. CAFFEINE. [Concomitant]
     Active Substance: CAFFEINE
  8. BENZYLPENICILLIN [Concomitant]
     Active Substance: PENICILLIN G
  9. DEXAMETHASONE. [Concomitant]
     Active Substance: DEXAMETHASONE
  10. CUROSURF [Concomitant]
     Active Substance: PORACTANT ALFA
  11. MORPHINE SULFATE. [Concomitant]
     Active Substance: MORPHINE SULFATE
  12. PROPOFOL (MANUFACTURER UNKNOWN) [Suspect]
     Active Substance: PROPOFOL
     Indication: ENDOTRACHEAL INTUBATION
     Route: 042
     Dates: start: 20161110, end: 20161110

REACTIONS (1)
  - Clonic convulsion [Recovered/Resolved]

NARRATIVE: CASE EVENT DATE: 20161110
